FAERS Safety Report 13251939 (Version 2)
Quarter: 2017Q1

REPORT INFORMATION
  Report Type: Report from Study
  Country: None (occurrence: US)
  Receive Date: 20170220
  Receipt Date: 20170331
  Transmission Date: 20170428
  Serious: Yes (Hospitalization, Other)
  Sender: FDA-Public Use
  Company Number: US-ABBVIE-16K-163-1588416-00

PATIENT
  Age: 62 Year
  Sex: Male
  Weight: 88.53 kg

DRUGS (2)
  1. HUMIRA [Suspect]
     Active Substance: ADALIMUMAB
     Route: 058
     Dates: start: 201607
  2. HUMIRA [Suspect]
     Active Substance: ADALIMUMAB
     Indication: CROHN^S DISEASE
     Route: 058
     Dates: start: 20071018, end: 201607

REACTIONS (8)
  - Small intestinal obstruction [Recovering/Resolving]
  - Pneumonia [Recovered/Resolved]
  - Oral fungal infection [Not Recovered/Not Resolved]
  - Large intestinal obstruction [Recovered/Resolved]
  - Crohn^s disease [Recovered/Resolved]
  - Vomiting [Recovering/Resolving]
  - Crohn^s disease [Recovering/Resolving]
  - Abscess intestinal [Recovered/Resolved]

NARRATIVE: CASE EVENT DATE: 201412
